FAERS Safety Report 10088187 (Version 1)
Quarter: 2014Q2

REPORT INFORMATION
  Report Type: Spontaneous
  Country: US (occurrence: US)
  Receive Date: 20140421
  Receipt Date: 20140421
  Transmission Date: 20141212
  Serious: No
  Sender: FDA-Public Use
  Company Number: US-BIOGENIDEC-2014BI036448

PATIENT
  Sex: Female

DRUGS (2)
  1. TYSABRI [Suspect]
     Indication: MULTIPLE SCLEROSIS
     Route: 042
     Dates: start: 20110825, end: 20120705
  2. TYSABRI [Suspect]
     Indication: MULTIPLE SCLEROSIS
     Route: 042
     Dates: start: 20120827

REACTIONS (5)
  - Aphasia [Not Recovered/Not Resolved]
  - Abasia [Not Recovered/Not Resolved]
  - Aphagia [Not Recovered/Not Resolved]
  - Dry throat [Not Recovered/Not Resolved]
  - Pain [Not Recovered/Not Resolved]
